FAERS Safety Report 11889957 (Version 1)
Quarter: 2016Q1

REPORT INFORMATION
  Report Type: Spontaneous
  Country: US (occurrence: US)
  Receive Date: 20160105
  Receipt Date: 20160105
  Transmission Date: 20160526
  Serious: No
  Sender: FDA-Public Use
  Company Number: US-PERRIGO-15US007927

PATIENT
  Age: 27 Year
  Sex: Male
  Weight: 88.44 kg

DRUGS (2)
  1. GUAIFENESIN 600 MG 498 [Suspect]
     Active Substance: GUAIFENESIN
     Indication: INCREASED UPPER AIRWAY SECRETION
     Dosage: 600 MG, EVERY 12 HOURS, PRN
     Route: 048
     Dates: start: 2014
  2. GUAIFENESIN 600 MG 498 [Suspect]
     Active Substance: GUAIFENESIN
     Dosage: 600 MG, THREE TIMES IN 16 HOURS
     Route: 048
     Dates: start: 20150729, end: 20150730

REACTIONS (3)
  - Dizziness [Unknown]
  - Inappropriate schedule of drug administration [Recovered/Resolved]
  - Wrong technique in product usage process [Unknown]

NARRATIVE: CASE EVENT DATE: 2014
